FAERS Safety Report 5192973-7 (Version None)
Quarter: 2006Q4

REPORT INFORMATION
  Report Type: 
  Country: None (occurrence: None)
  Receive Date: 20061228
  Receipt Date: 20060329
  Transmission Date: 20070319
  Serious: Yes (Other)
  Sender: FDA-Public Use
  Company Number: US-GLAXOSMITHKLINE-A0599527A

PATIENT
  Age: 51 Year
  Sex: Female

DRUGS (2)
  1. FLONASE [Suspect]
     Dosage: 2SPR PER DAY
     Route: 045
  2. SUDAFED 12 HOUR [Concomitant]

REACTIONS (4)
  - ASTHMA [None]
  - BURNING SENSATION [None]
  - DYSGEUSIA [None]
  - HEADACHE [None]
